FAERS Safety Report 6945421-8 (Version None)
Quarter: 2010Q3

REPORT INFORMATION
  Report Type: 
  Country: None (occurrence: None)
  Receive Date: 20100827
  Receipt Date: 20100819
  Transmission Date: 20110219
  Serious: Yes (Death)
  Sender: FDA-Public Use
  Company Number: US-ROCHE-707473

PATIENT
  Sex: Female
  Weight: 72.6 kg

DRUGS (20)
  1. CAPECITABINE [Suspect]
     Indication: COLORECTAL CANCER
     Dosage: 500 MG TABLETS THRICE DAILY AND 150 MG TABLETS TWICE DAILY
     Route: 048
     Dates: start: 20100323
  2. CAPECITABINE [Suspect]
     Dosage: CYCLE 2.
     Route: 048
     Dates: start: 20100427, end: 20100512
  3. OXALIPLATIN [Suspect]
     Indication: COLORECTAL CANCER
     Dosage: CYCLE 1.
     Route: 065
     Dates: start: 20100323
  4. OXALIPLATIN [Suspect]
     Dosage: CYCLE 2.
     Route: 065
     Dates: start: 20100427, end: 20100512
  5. AUGMENTIN '125' [Concomitant]
  6. AUGMENTIN '125' [Concomitant]
  7. B COMPLEX WITH C [Concomitant]
     Dosage: DRUG: B COMPLEX PLUS VITAMIN C.
  8. B COMPLEX WITH C [Concomitant]
  9. B COMPLEX WITH C [Concomitant]
  10. B COMPLEX WITH C [Concomitant]
  11. B COMPLEX WITH C [Concomitant]
  12. CALCIUM [Concomitant]
     Dosage: DRUG: CALCIUM: 600
  13. COMPAZINE [Concomitant]
  14. FLAXSEED [Concomitant]
     Dosage: DRUG: FLAXSEEDOIL.
  15. LEVAQUIN [Concomitant]
  16. METFORMIN [Concomitant]
  17. PAROXETINE HCL [Concomitant]
  18. PREVACID [Concomitant]
  19. VICODIN [Concomitant]
     Dosage: DRUG: VICODIN ES.
  20. VITAMINE D [Concomitant]

REACTIONS (1)
  - MALIGNANT NEOPLASM PROGRESSION [None]
